FAERS Safety Report 5782480-2 (Version None)
Quarter: 2008Q2

REPORT INFORMATION
  Report Type: 
  Country: None (occurrence: None)
  Receive Date: 20080623
  Receipt Date: 20080208
  Transmission Date: 20081010
  Serious: No
  Sender: FDA-Public Use
  Company Number: US-AMGEN-KDL258825

PATIENT
  Sex: Male

DRUGS (3)
  1. ARANESP [Suspect]
     Indication: ANAEMIA
     Dates: start: 20071023
  2. LEVOTHYROXINE SODIUM [Concomitant]
  3. VITAMIN B6 [Concomitant]

REACTIONS (1)
  - CHILLS [None]
